FAERS Safety Report 24705503 (Version 1)
Quarter: 2024Q4

REPORT INFORMATION
  Report Type: Spontaneous
  Country: US (occurrence: None)
  Receive Date: 20241205
  Receipt Date: 20241205
  Transmission Date: 20250114
  Serious: Yes (Hospitalization)
  Sender: Public
  Company Number: None

PATIENT
  Age: 8 Year
  Sex: Female
  Weight: 71.8 kg

DRUGS (9)
  1. DUPIXENT [Suspect]
     Active Substance: DUPILUMAB
     Indication: Eczema
     Dosage: 300 MG EVERY 14 DAYS SUBCUTANEOUS?
     Route: 058
     Dates: start: 20241023, end: 20241130
  2. CYCLOSPORINE [Concomitant]
     Active Substance: CYCLOSPORINE
  3. CLARITIN [Concomitant]
     Active Substance: LORATADINE
  4. FLONASE [Concomitant]
     Active Substance: FLUTICASONE PROPIONATE
  5. MOMETASONE [Concomitant]
     Active Substance: MOMETASONE
  6. VITAMINS [Concomitant]
     Active Substance: VITAMINS
  7. MUPIROCIN [Concomitant]
     Active Substance: MUPIROCIN
  8. TACROLIMUS [Concomitant]
     Active Substance: TACROLIMUS
  9. ZYRTEC [Concomitant]
     Active Substance: CETIRIZINE HYDROCHLORIDE

REACTIONS (1)
  - Drug hypersensitivity [None]

NARRATIVE: CASE EVENT DATE: 20241130
